FAERS Safety Report 12648223 (Version 1)
Quarter: 2016Q3

REPORT INFORMATION
  Report Type: Spontaneous
  Country: DK (occurrence: DK)
  Receive Date: 20160812
  Receipt Date: 20160812
  Transmission Date: 20161109
  Serious: Yes (Death, Life-Threatening, Hospitalization, Other)
  Sender: FDA-Public Use
  Company Number: DK-CELLTRION INC.-2016DK006441

PATIENT

DRUGS (5)
  1. MYCOPHENOLIC ACID. [Suspect]
     Active Substance: MYCOPHENOLIC ACID
     Indication: PYODERMA GANGRENOSUM
     Route: 065
  2. GLUCOCORTICOIDS [Concomitant]
     Active Substance: UNSPECIFIED INGREDIENT
     Indication: PYODERMA GANGRENOSUM
  3. INFLIXIMAB [Suspect]
     Active Substance: INFLIXIMAB
     Indication: PYODERMA GANGRENOSUM
     Dosage: 400 MG, UNK
     Route: 042
  4. INFLIXIMAB [Suspect]
     Active Substance: INFLIXIMAB
     Dosage: 400 MG, UNK
     Route: 042
  5. MYCOPHENOLATE MOFETIL. [Concomitant]
     Active Substance: MYCOPHENOLATE MOFETIL
     Indication: PYODERMA GANGRENOSUM
     Route: 065

REACTIONS (5)
  - Orbital apex syndrome [Unknown]
  - Infection reactivation [Unknown]
  - Encephalopathy [Fatal]
  - Varicella zoster virus infection [Unknown]
  - Off label use [Unknown]
